FAERS Safety Report 24841444 (Version 1)
Quarter: 2025Q1

REPORT INFORMATION
  Report Type: Spontaneous
  Country: US (occurrence: None)
  Receive Date: 20250114
  Receipt Date: 20250114
  Transmission Date: 20250409
  Serious: Yes (Hospitalization)
  Sender: FDA-CTU
  Company Number: None

PATIENT
  Age: 87 Year
  Sex: Male

DRUGS (1)
  1. APIXABAN [Suspect]
     Active Substance: APIXABAN
     Indication: Pulmonary embolism
     Dates: end: 20241218

REACTIONS (10)
  - Anaemia [None]
  - Gastrointestinal haemorrhage [None]
  - Abdominal pain lower [None]
  - Acute kidney injury [None]
  - Hypokalaemia [None]
  - Leukocytosis [None]
  - Pneumonia [None]
  - Occult blood positive [None]
  - Sepsis [None]
  - Urinary tract infection [None]

NARRATIVE: CASE EVENT DATE: 20241127
